FAERS Safety Report 9946995 (Version 1)
Quarter: 2014Q1

REPORT INFORMATION
  Report Type: Report from Study
  Country: US (occurrence: US)
  Receive Date: 20140303
  Receipt Date: 20140303
  Transmission Date: 20141002
  Serious: No
  Sender: FDA-Public Use
  Company Number: US-ABBVIE-13P-163-1059668-00

PATIENT
  Age: 19 Year
  Sex: Male

DRUGS (7)
  1. HUMIRA [Suspect]
     Indication: CROHN^S DISEASE
     Dates: start: 20130121, end: 20130121
  2. HUMIRA [Suspect]
     Dates: start: 20130204, end: 20130204
  3. HUMIRA [Suspect]
     Dates: start: 20130218
  4. ASACOL [Concomitant]
     Indication: CROHN^S DISEASE
  5. PROTONIX [Concomitant]
     Indication: GASTRIC PH DECREASED
  6. OXYCODONE [Concomitant]
     Indication: ABDOMINAL PAIN UPPER
     Dosage: 10 MG AS NEEDED
  7. OXYCODONE [Concomitant]
     Indication: ARTHRALGIA

REACTIONS (1)
  - Injection site pruritus [Recovering/Resolving]
